FAERS Safety Report 10101888 (Version 5)
Quarter: 2014Q3

REPORT INFORMATION
  Report Type: Spontaneous
  Country: JP (occurrence: JP)
  Receive Date: 20140424
  Receipt Date: 20140730
  Transmission Date: 20150326
  Serious: Yes (Hospitalization)
  Sender: FDA-Public Use
  Company Number: PHHY2014JP049193

PATIENT
  Age: 79 Year
  Sex: Female
  Weight: 34 kg

DRUGS (16)
  1. TASIGNA [Suspect]
     Active Substance: NILOTINIB
     Dosage: 150 MG, DAILY
     Route: 048
     Dates: start: 20140226
  2. LIPITOR [Concomitant]
     Active Substance: ATORVASTATIN CALCIUM
     Dosage: 10 MG, DAILY
     Dates: start: 20100407
  3. TASIGNA [Suspect]
     Active Substance: NILOTINIB
     Dosage: 300 MG, DAILY
     Route: 048
     Dates: start: 20140110, end: 20140225
  4. RASILEZ [Concomitant]
     Active Substance: ALISKIREN
     Indication: HYPERTENSION
     Dosage: 150 MG
     Route: 048
     Dates: start: 20131018, end: 20140312
  5. MEDICON//DEXTROMETHORPHAN HYDROBROMIDE [Concomitant]
     Dosage: 90 MG, DAILY
     Dates: start: 20100407
  6. TASIGNA [Suspect]
     Active Substance: NILOTINIB
     Indication: CHRONIC MYELOID LEUKAEMIA
     Dosage: 200 MG, BID
     Route: 048
     Dates: start: 20100407, end: 20100415
  7. AMLODIN [Concomitant]
     Active Substance: AMLODIPINE BESYLATE
     Indication: HYPERTENSION
     Dosage: 5 MG
     Route: 048
     Dates: start: 20131018
  8. ADALAT CRONO [Concomitant]
     Active Substance: NIFEDIPINE
     Dosage: 20 MG, DAILY
     Dates: start: 20100407
  9. CRESTOR [Concomitant]
     Active Substance: ROSUVASTATIN CALCIUM
     Indication: HYPERLIPIDAEMIA
     Dosage: 5 MG
     Route: 048
  10. CALSLOT [Concomitant]
     Active Substance: MANIDIPINE HYDROCHLORIDE
     Indication: HYPERTENSION
     Route: 048
     Dates: end: 20131017
  11. DESOPAN [Concomitant]
     Indication: CUSHING^S SYNDROME
     Dosage: 480 MG
     Route: 048
  12. SYMBICORT [Concomitant]
     Active Substance: BUDESONIDE\FORMOTEROL FUMARATE DIHYDRATE
     Indication: ASTHMA
     Dosage: 4 DF, UNK
     Route: 055
  13. SINGULAIR [Concomitant]
     Active Substance: MONTELUKAST SODIUM
     Dosage: 10 MG, DAILY
     Dates: start: 20100407
  14. TASIGNA [Suspect]
     Active Substance: NILOTINIB
     Dosage: 200 MG, DAILY
     Route: 048
     Dates: start: 20100418, end: 20140109
  15. FLUITRAN [Suspect]
     Active Substance: TRICHLORMETHIAZIDE
     Indication: HYPERTENSION
     Dosage: 2 MG, DAILY
     Route: 048
     Dates: start: 20100421
  16. PREMINENT [Concomitant]
     Active Substance: HYDROCHLOROTHIAZIDE\LOSARTAN POTASSIUM
     Dosage: 1 DF, QD
     Dates: start: 20100407

REACTIONS (4)
  - Decreased appetite [Recovering/Resolving]
  - Eosinophil count increased [Recovered/Resolved]
  - Cerebral infarction [Recovered/Resolved with Sequelae]
  - Hyponatraemia [Recovered/Resolved]

NARRATIVE: CASE EVENT DATE: 20131107
